FAERS Safety Report 23222565 (Version 1)
Quarter: 2023Q4

REPORT INFORMATION
  Report Type: Report from Study
  Country: FR (occurrence: FR)
  Receive Date: 20231123
  Receipt Date: 20231123
  Transmission Date: 20240110
  Serious: Yes (Hospitalization)
  Sender: FDA-Public Use
  Company Number: FR-002147023-NVSC2022FR052935

PATIENT
  Age: 35 Year
  Sex: Male
  Weight: 90 kg

DRUGS (7)
  1. CYCLOPHOSPHAMIDE [Suspect]
     Active Substance: CYCLOPHOSPHAMIDE
     Indication: Chemotherapy
     Dosage: 300 MG, (T1 AND T3)
     Route: 042
     Dates: start: 20220215, end: 20220217
  2. DEXAMETHASONE [Suspect]
     Active Substance: DEXAMETHASONE
     Indication: Chemotherapy
     Dosage: 4 MG, (T1 AND T3)
     Route: 042
     Dates: start: 20220215, end: 20220217
  3. ETOPOSIDE [Suspect]
     Active Substance: ETOPOSIDE
     Indication: Acute lymphocytic leukaemia
     Dosage: 160 MG, (T1 AND T3)
     Route: 040
     Dates: start: 20220215
  4. NELARABINE [Suspect]
     Active Substance: NELARABINE
     Indication: Acute lymphocytic leukaemia
     Dosage: 3000 G (CYCLE 3)
     Route: 042
     Dates: start: 20220215, end: 20220219
  5. BACTRIM [Concomitant]
     Active Substance: SULFAMETHOXAZOLE\TRIMETHOPRIM
     Indication: Infection prophylaxis
     Dosage: UNK, QW
     Route: 048
     Dates: start: 20211227
  6. FOLIC ACID [Concomitant]
     Active Substance: FOLIC ACID
     Indication: Anaemia prophylaxis
     Dosage: 5 MG, (2 TABLETS)
     Route: 048
     Dates: start: 20211227
  7. VALACYCLOVIR HYDROCHLORIDE [Concomitant]
     Active Substance: VALACYCLOVIR HYDROCHLORIDE
     Indication: Prophylaxis
     Dosage: 500 MG, (ONE TABLET)
     Route: 048
     Dates: start: 20211227

REACTIONS (2)
  - Myositis [Recovered/Resolved]
  - Hepatic cytolysis [Not Recovered/Not Resolved]

NARRATIVE: CASE EVENT DATE: 20220224
